FAERS Safety Report 10933863 (Version 1)
Quarter: 2015Q1

REPORT INFORMATION
  Report Type: Spontaneous
  Country: US (occurrence: US)
  Receive Date: 20150320
  Receipt Date: 20150320
  Transmission Date: 20150721
  Serious: No
  Sender: FDA-Public Use
  Company Number: US-BIOGENIDEC-2015BI034945

PATIENT
  Age: 33 Year
  Sex: Male

DRUGS (1)
  1. TECFIDERA [Suspect]
     Active Substance: DIMETHYL FUMARATE
     Indication: MULTIPLE SCLEROSIS
     Route: 048
     Dates: start: 20150215

REACTIONS (5)
  - Diarrhoea [Unknown]
  - Vomiting [Unknown]
  - Night sweats [Unknown]
  - Rash pruritic [Unknown]
  - Insomnia [Unknown]

NARRATIVE: CASE EVENT DATE: 20150311
